FAERS Safety Report 23250891 (Version 3)
Quarter: 2023Q4

REPORT INFORMATION
  Report Type: Spontaneous
  Country: US (occurrence: US)
  Receive Date: 20231201
  Receipt Date: 20231230
  Transmission Date: 20240109
  Serious: No
  Sender: FDA-Public Use
  Company Number: US-GLAXOSMITHKLINE-US2023AMR163481

PATIENT
  Sex: Female

DRUGS (1)
  1. ZEJULA [Suspect]
     Active Substance: NIRAPARIB
     Indication: Product used for unknown indication
     Dosage: 200 MG, QD

REACTIONS (6)
  - Dehydration [Recovering/Resolving]
  - Nausea [Unknown]
  - Peripheral coldness [Unknown]
  - Hypertension [Unknown]
  - Blood pressure increased [Unknown]
  - Red blood cell count increased [Unknown]
